FAERS Safety Report 6249171-5 (Version None)
Quarter: 2009Q2

REPORT INFORMATION
  Report Type: 
  Country: None (occurrence: None)
  Receive Date: 20090629
  Receipt Date: 20090619
  Transmission Date: 20091009
  Serious: Yes (Hospitalization, Other)
  Sender: FDA-Public Use
  Company Number: DE-JNJFOC-20090607918

PATIENT
  Sex: Male
  Weight: 2.04 kg

DRUGS (2)
  1. TOPAMAX [Suspect]
     Indication: DRUG EXPOSURE DURING PREGNANCY
  2. FOLIC ACID [Suspect]
     Indication: DRUG EXPOSURE DURING PREGNANCY
     Route: 064

REACTIONS (4)
  - DRUG EXPOSURE VIA BREAST MILK [None]
  - DYSPHAGIA [None]
  - HYPOTHERMIA [None]
  - PREMATURE BABY [None]
